FAERS Safety Report 9698402 (Version 1)
Quarter: 2013Q4

REPORT INFORMATION
  Report Type: Report from Study
  Country: LB (occurrence: LB)
  Receive Date: 20131120
  Receipt Date: 20131120
  Transmission Date: 20140711
  Serious: Yes (Death)
  Sender: FDA-Public Use
  Company Number: LB-SA-2013SA117204

PATIENT
  Age: 64 Year
  Sex: Female

DRUGS (8)
  1. LANTUS SOLOSTAR [Suspect]
     Indication: DIABETES MELLITUS
     Dosage: DOSE:16 UNIT(S)
     Route: 058
  2. SOLOSTAR [Concomitant]
     Indication: DEVICE THERAPY
     Route: 058
  3. AMARYL [Concomitant]
     Indication: DIABETES MELLITUS
     Route: 048
  4. SIOFOR [Concomitant]
     Indication: DIABETES MELLITUS
     Route: 048
  5. INDERAL [Concomitant]
     Route: 048
  6. NEURONTIN [Concomitant]
     Route: 048
  7. EXFORGE [Concomitant]
     Route: 048
  8. SENNA [Concomitant]
     Route: 048

REACTIONS (1)
  - Myocardial infarction [Fatal]
